FAERS Safety Report 7548053-6 (Version None)
Quarter: 2011Q2

REPORT INFORMATION
  Report Type: 
  Country: None (occurrence: None)
  Receive Date: 20110608
  Receipt Date: 20110524
  Transmission Date: 20111010
  Serious: Yes (Other)
  Sender: FDA-Public Use
  Company Number: AUR-APL-2011-002175

PATIENT
  Age: 71 Year
  Sex: Female

DRUGS (6)
  1. SUTRIL (10MG) [Concomitant]
  2. APROVEL (300MG) [Concomitant]
  3. PRAVASTATIN SODIUM (20MG) [Concomitant]
  4. AROMASIN [Suspect]
     Dosage: 25MG-QD-ORAL
     Dates: start: 20101101
  5. LEVOTHROID (100UG) [Concomitant]
  6. METFORMIN HCL [Suspect]
     Dosage: 850MG-BID-ORAL
     Route: 048
     Dates: start: 20100301

REACTIONS (1)
  - INSOMNIA [None]
